FAERS Safety Report 8021811-X (Version None)
Quarter: 2012Q1

REPORT INFORMATION
  Report Type: 
  Country: None (occurrence: None)
  Receive Date: 20120104
  Receipt Date: 20111222
  Transmission Date: 20120608
  Serious: No
  Sender: FDA-Public Use
  Company Number: TR-SANOFI-AVENTIS-2010SA074745

PATIENT
  Age: 26 Year
  Sex: Female
  Weight: 62 kg

DRUGS (3)
  1. INFLIXIMAB [Suspect]
     Dosage: FREQUENCY: EVERY 2 MONTHS
     Route: 042
     Dates: start: 20100420
  2. ISONIAZID [Suspect]
     Route: 048
     Dates: start: 20100401, end: 20100915
  3. ARAVA [Suspect]
     Route: 048
     Dates: start: 20100215, end: 20100401

REACTIONS (1)
  - FOETAL EXPOSURE DURING PREGNANCY [None]
